FAERS Safety Report 8393175-3 (Version None)
Quarter: 2012Q2

REPORT INFORMATION
  Report Type: 
  Country: None (occurrence: None)
  Receive Date: 20120529
  Receipt Date: 20120514
  Transmission Date: 20120825
  Serious: No
  Sender: FDA-Public Use
  Company Number: US-ABBOTT-12P-163-0935036-00

PATIENT
  Sex: Male
  Weight: 147.55 kg

DRUGS (10)
  1. ANDROGEL [Suspect]
     Indication: BLOOD TESTOSTERONE DECREASED
     Dosage: FOUR PUMP ACTUATIONS DAILY.
     Route: 061
     Dates: start: 20120501
  2. PAXIL [Concomitant]
     Indication: PRODUCT USED FOR UNKNOWN INDICATION
  3. WARFARIN SODIUM [Concomitant]
     Indication: ANTICOAGULANT THERAPY
  4. JANUVIA [Concomitant]
     Indication: DIABETES MELLITUS
  5. FINASTRIDE [Concomitant]
     Indication: PROSTATOMEGALY
  6. DIGOXIN [Concomitant]
     Indication: CARDIAC DISORDER
  7. MULTAQ [Concomitant]
     Indication: CARDIAC DISORDER
  8. CLONAZEPAM [Concomitant]
     Indication: INSOMNIA
  9. METFORMIN HCL [Concomitant]
     Indication: DIABETES MELLITUS
  10. TAMSULOSIN HCL [Concomitant]
     Indication: PROSTATOMEGALY

REACTIONS (1)
  - DRUG INEFFECTIVE [None]
